FAERS Safety Report 18609886 (Version 1)
Quarter: 2020Q4

REPORT INFORMATION
  Report Type: Spontaneous
  Country: US (occurrence: US)
  Receive Date: 20201214
  Receipt Date: 20201214
  Transmission Date: 20210114
  Serious: Yes (Hospitalization, Other)
  Sender: FDA-Public Use
  Company Number: US-EMD SERONO-9204500

PATIENT
  Age: 46 Year
  Sex: Female
  Weight: 52 kg

DRUGS (4)
  1. LANTUS [Suspect]
     Active Substance: INSULIN GLARGINE
     Dosage: DOSE REDUCED
     Dates: start: 201907
  2. NIVOLUMAB [Suspect]
     Active Substance: NIVOLUMAB
     Indication: COLON CANCER METASTATIC
     Route: 042
     Dates: start: 20190715
  3. LANTUS [Suspect]
     Active Substance: INSULIN GLARGINE
     Indication: TYPE 2 DIABETES MELLITUS
  4. METFORMIN [Suspect]
     Active Substance: METFORMIN HYDROCHLORIDE
     Indication: PRODUCT USED FOR UNKNOWN INDICATION
     Dosage: 500 MG IN THE MORNING AND 1000 MG IN THE EVENING
     Route: 048
     Dates: start: 20190701

REACTIONS (10)
  - Type 1 diabetes mellitus [Recovering/Resolving]
  - Hypokalaemia [Recovering/Resolving]
  - Pleural effusion [Recovering/Resolving]
  - Oxygen saturation decreased [Recovering/Resolving]
  - Diarrhoea [Recovered/Resolved]
  - Hypophosphataemia [Recovering/Resolving]
  - Pyrexia [Recovered/Resolved]
  - Pulmonary mass [Recovering/Resolving]
  - Hypoglycaemia [Recovering/Resolving]
  - Gastrooesophageal reflux disease [Recovering/Resolving]

NARRATIVE: CASE EVENT DATE: 201907
